FAERS Safety Report 5015533-7 (Version None)
Quarter: 2006Q2

REPORT INFORMATION
  Report Type: 
  Country: None (occurrence: None)
  Receive Date: 20060601
  Receipt Date: 20060523
  Transmission Date: 20061013
  Serious: Yes (Other)
  Sender: FDA-Public Use
  Company Number: GB-AVENTIS-200615579GDDC

PATIENT
  Age: 88 Year
  Sex: Female

DRUGS (8)
  1. ARAVA [Suspect]
     Indication: RHEUMATOID ARTHRITIS
     Route: 048
     Dates: start: 20060421
  2. AMITRIPTYLINE HCL [Concomitant]
     Route: 048
  3. CO-DYDRAMOL [Concomitant]
     Indication: PAIN
     Dosage: DOSE: 10/500
     Route: 048
  4. OMEPRAZOLE [Concomitant]
     Indication: ABDOMINAL DISCOMFORT
     Route: 048
  5. LEVOTHYROXINE SODIUM [Concomitant]
     Route: 048
  6. FOLIC ACID [Concomitant]
     Indication: FOLATE DEFICIENCY
     Route: 048
  7. METHOTREXATE [Concomitant]
     Route: 048
  8. MOVICOL [Concomitant]
     Indication: CONSTIPATION
     Dosage: DOSE: UNK
     Route: 048

REACTIONS (1)
  - PHOTOSENSITIVITY REACTION [None]
